FAERS Safety Report 19853288 (Version 5)
Quarter: 2023Q4

REPORT INFORMATION
  Report Type: Spontaneous
  Country: US (occurrence: US)
  Receive Date: 20210919
  Receipt Date: 20231127
  Transmission Date: 20240109
  Serious: No
  Sender: FDA-Public Use
  Company Number: US-SA-SAC20210915001505

PATIENT
  Age: 42 Year
  Sex: Male

DRUGS (17)
  1. DUPIXENT [Suspect]
     Active Substance: DUPILUMAB
     Indication: Asthma
     Dosage: 300 MG, QOW
     Route: 058
     Dates: start: 20201007
  2. ADMELOG [Concomitant]
     Active Substance: INSULIN LISPRO
  3. ATORVASTATIN [Concomitant]
     Active Substance: ATORVASTATIN
  4. BASAGLAR [Concomitant]
     Active Substance: INSULIN GLARGINE
  5. FAMOTIDINE [Concomitant]
     Active Substance: FAMOTIDINE
  6. FLUTICASONE [Concomitant]
     Active Substance: FLUTICASONE
  7. LATANOPROST [Concomitant]
     Active Substance: LATANOPROST
  8. LOSARTAN POTASSIUM [Concomitant]
     Active Substance: LOSARTAN POTASSIUM
  9. MONTELUKAST [Concomitant]
     Active Substance: MONTELUKAST SODIUM
  10. OZEMPIC [Concomitant]
     Active Substance: SEMAGLUTIDE
  11. VENLAFAXINE [Concomitant]
     Active Substance: VENLAFAXINE HYDROCHLORIDE
  12. VIT D [VITAMIN D NOS] [Concomitant]
     Dosage: UNK
  13. LEVOCETIRIZINE DIHYDROCHLORIDE [Concomitant]
     Active Substance: LEVOCETIRIZINE DIHYDROCHLORIDE
  14. HYDROCHLOROTHIAZIDE [Concomitant]
     Active Substance: HYDROCHLOROTHIAZIDE
  15. SIMBRINZA [Concomitant]
     Active Substance: BRIMONIDINE TARTRATE\BRINZOLAMIDE
  16. GABAPENTIN [Concomitant]
     Active Substance: GABAPENTIN
  17. INSULIN GLARGINE-AGLR [Concomitant]
     Active Substance: INSULIN GLARGINE-AGLR
     Dosage: UNK

REACTIONS (7)
  - Impaired quality of life [Unknown]
  - Sinusitis [Not Recovered/Not Resolved]
  - Rhinorrhoea [Not Recovered/Not Resolved]
  - Nasal congestion [Not Recovered/Not Resolved]
  - Asthma [Not Recovered/Not Resolved]
  - Product dose omission issue [Unknown]
  - Drug ineffective [Unknown]
